FAERS Safety Report 11079971 (Version 3)
Quarter: 2015Q2

REPORT INFORMATION
  Report Type: Report from Study
  Country: ES (occurrence: ES)
  Receive Date: 20150430
  Receipt Date: 20150513
  Transmission Date: 20150821
  Serious: Yes (Death, Hospitalization)
  Sender: FDA-Public Use
  Company Number: PHHO2015ES005872

PATIENT
  Age: 42 Year
  Sex: Male

DRUGS (15)
  1. NO TREATMENT RECEIVED [Suspect]
     Active Substance: UNSPECIFIED INGREDIENT
     Indication: RENAL TRANSPLANT
     Dosage: NO TREATMENT
     Route: 065
  2. PROGRAF [Suspect]
     Active Substance: TACROLIMUS\TACROLIMUS ANHYDROUS
     Dosage: UNK
     Route: 065
     Dates: start: 20150428, end: 20150507
  3. PANTOPRAZOLE SODIUM. [Concomitant]
     Active Substance: PANTOPRAZOLE SODIUM
     Indication: PROPHYLAXIS
     Dosage: 40 MG, QD
     Route: 065
     Dates: start: 20141202
  4. PROGRAF [Suspect]
     Active Substance: TACROLIMUS\TACROLIMUS ANHYDROUS
     Indication: RENAL TRANSPLANT
     Dosage: 2.5 MG, Q12H
     Route: 065
     Dates: start: 20141202, end: 20150403
  5. PROGRAF [Suspect]
     Active Substance: TACROLIMUS\TACROLIMUS ANHYDROUS
     Dosage: 6 MG, Q12H
     Route: 065
     Dates: start: 20150415
  6. PROGRAF [Suspect]
     Active Substance: TACROLIMUS\TACROLIMUS ANHYDROUS
     Dosage: 8 MG, Q12H
     Route: 065
     Dates: start: 20150417
  7. DOXAZOSIN [Concomitant]
     Active Substance: DOXAZOSIN\DOXAZOSIN MESYLATE
     Indication: HYPERTENSION
     Dosage: 4 MG, QD
     Route: 065
     Dates: start: 201412
  8. PROGRAF [Suspect]
     Active Substance: TACROLIMUS\TACROLIMUS ANHYDROUS
     Dosage: 2.5 MG, Q12H
     Route: 065
     Dates: start: 20150409
  9. ARTEDIL [Concomitant]
     Indication: HYPERTENSION
     Dosage: 20 MG, QD
     Route: 065
     Dates: start: 20141215
  10. PROGRAF [Suspect]
     Active Substance: TACROLIMUS\TACROLIMUS ANHYDROUS
     Dosage: 3 MG, Q12H
     Route: 065
     Dates: start: 20150410
  11. CARVEDILOL. [Concomitant]
     Active Substance: CARVEDILOL
     Indication: HYPERTENSION
     Dosage: 12.5 MG, Q12H
     Route: 065
     Dates: start: 20141203
  12. MYFORTIC [Suspect]
     Active Substance: MYCOPHENOLATE SODIUM
     Indication: RENAL TRANSPLANT
     Dosage: 360 MG, Q12H
     Route: 065
     Dates: start: 20141202, end: 20150413
  13. PROGRAF [Suspect]
     Active Substance: TACROLIMUS\TACROLIMUS ANHYDROUS
     Dosage: 4 MG, Q12H
     Route: 065
     Dates: start: 20150412
  14. INSULIN NPH//INSULIN ISOPHANE BOVINE [Concomitant]
     Active Substance: INSULIN BEEF
     Indication: DIABETES MELLITUS
     Dosage: 33-14 UNITS
     Route: 065
     Dates: start: 201206
  15. PREDNISONE. [Suspect]
     Active Substance: PREDNISONE
     Indication: RENAL TRANSPLANT
     Dosage: 7.5 MG, QD
     Route: 065
     Dates: start: 20141203

REACTIONS (1)
  - Subarachnoid haemorrhage [Fatal]

NARRATIVE: CASE EVENT DATE: 20150403
